FAERS Safety Report 21579535 (Version 1)
Quarter: 2022Q4

REPORT INFORMATION
  Report Type: Spontaneous
  Country: GR (occurrence: GR)
  Receive Date: 20221110
  Receipt Date: 20221110
  Transmission Date: 20230112
  Serious: Yes (Death, Other)
  Sender: FDA-Public Use
  Company Number: GR-RAFARM-GEMC09221255-INITIAL

PATIENT
  Age: 73 Year
  Sex: Female

DRUGS (4)
  1. GEMCITABINE [Suspect]
     Active Substance: GEMCITABINE
     Indication: Follicular dendritic cell sarcoma
     Dosage: UNK
     Route: 042
  2. GEMCITABINE [Suspect]
     Active Substance: GEMCITABINE
     Indication: Paraneoplastic pemphigus
  3. PREDNISONE [Concomitant]
     Active Substance: PREDNISONE
     Indication: Paraneoplastic pemphigus
     Dosage: UNK
     Route: 065
  4. PREDNISONE [Concomitant]
     Active Substance: PREDNISONE
     Indication: Follicular dendritic cell sarcoma

REACTIONS (3)
  - Death [Fatal]
  - Corneal perforation [Recovered/Resolved]
  - Visual impairment [Unknown]
